FAERS Safety Report 15959764 (Version 1)
Quarter: 2019Q1

REPORT INFORMATION
  Report Type: Spontaneous
  Country: FR (occurrence: FR)
  Receive Date: 20190214
  Receipt Date: 20190214
  Transmission Date: 20190417
  Serious: Yes (Hospitalization)
  Sender: FDA-Public Use
  Company Number: FR-TEVA-2019-FR-1009602

PATIENT
  Age: 79 Year
  Sex: Female
  Weight: 76 kg

DRUGS (17)
  1. TEMERIT [Concomitant]
     Active Substance: NEBIVOLOL
  2. VALSARTAN. [Suspect]
     Active Substance: VALSARTAN
     Indication: HYPERTENSION
     Dosage: 80 MILLIGRAM DAILY;
     Route: 048
     Dates: end: 201612
  3. MACROGOLS [Concomitant]
     Active Substance: POLYETHYLENE GLYCOLS
  4. EDUCTYL [Concomitant]
     Active Substance: POTASSIUM BITARTRATE\SODIUM BICARBONATE
  5. AMLOR [Concomitant]
     Active Substance: AMLODIPINE BESYLATE
  6. ACTISKENAN [Concomitant]
     Active Substance: MORPHINE SULFATE
  7. BACTRIM [Concomitant]
     Active Substance: SULFAMETHOXAZOLE\TRIMETHOPRIM
  8. TAHOR [Concomitant]
     Active Substance: ATORVASTATIN CALCIUM
  9. CALCIPARINE [Concomitant]
     Active Substance: HEPARIN CALCIUM
  10. NOVORAPID [Concomitant]
     Active Substance: INSULIN ASPART
  11. DOLIPRANE [Concomitant]
     Active Substance: ACETAMINOPHEN
  12. LASILIX [Suspect]
     Active Substance: FUROSEMIDE
     Indication: HYPERTENSION
     Dosage: 20 MILLIGRAM DAILY;
     Route: 048
     Dates: end: 201612
  13. LANSOPRAZOLE. [Concomitant]
     Active Substance: LANSOPRAZOLE
  14. SKENAN [Concomitant]
     Active Substance: MORPHINE SULFATE
  15. KARDEGIC [Concomitant]
     Active Substance: ASPIRIN DL-LYSINE
  16. NORMACOL [Concomitant]
     Active Substance: HERBALS\KARAYA GUM
  17. LANTUS [Concomitant]
     Active Substance: INSULIN GLARGINE

REACTIONS (1)
  - Acute kidney injury [Recovering/Resolving]

NARRATIVE: CASE EVENT DATE: 201612
